FAERS Safety Report 9863361 (Version 1)
Quarter: 2014Q1

REPORT INFORMATION
  Report Type: Report from Study
  Country: US (occurrence: US)
  Receive Date: 20140203
  Receipt Date: 20140203
  Transmission Date: 20141002
  Serious: Yes (Death)
  Sender: FDA-Public Use
  Company Number: US-ROCHE-1319138

PATIENT
  Age: 62 Year
  Sex: Male
  Weight: 47.31 kg

DRUGS (16)
  1. AVASTIN [Suspect]
     Indication: MALIGNANT NEOPLASM OF PLEURA
     Route: 042
  2. AVASTIN [Suspect]
     Indication: NEOPLASM
     Route: 042
     Dates: start: 20101123
  3. AVASTIN [Suspect]
     Route: 042
     Dates: start: 20101103
  4. AVASTIN [Suspect]
     Route: 042
     Dates: start: 20101214
  5. AVASTIN [Suspect]
     Route: 042
     Dates: start: 20110111
  6. AVASTIN [Suspect]
     Route: 042
     Dates: start: 20110201
  7. ZOMETA [Concomitant]
     Route: 042
  8. DURAGESIC [Concomitant]
     Dosage: CHANGE PATCH EVERY 72 HOURS
     Route: 062
     Dates: start: 20110201
  9. ALOXI [Concomitant]
     Route: 042
  10. ALOXI [Concomitant]
     Dosage: 0.25/25 MG
     Route: 040
     Dates: start: 20101103, end: 20101103
  11. ALIMTA [Concomitant]
     Route: 042
  12. VITAMIN B12 [Concomitant]
     Route: 030
  13. HEXADROL [Concomitant]
     Route: 042
     Dates: end: 20101214
  14. HEXADROL [Concomitant]
     Route: 042
     Dates: start: 20101214
  15. CARBOPLATIN [Concomitant]
     Route: 042
     Dates: end: 20101123
  16. CARBOPLATIN [Concomitant]
     Route: 042
     Dates: start: 20101123

REACTIONS (13)
  - Death [Fatal]
  - Decreased appetite [Unknown]
  - Weight decreased [Unknown]
  - Somnolence [Recovering/Resolving]
  - Asthenia [Unknown]
  - Fatigue [Unknown]
  - Cough [Unknown]
  - Musculoskeletal pain [Unknown]
  - Nasal congestion [Unknown]
  - Cachexia [Unknown]
  - Contusion [Unknown]
  - Dizziness [Unknown]
  - Platelet count decreased [Unknown]
